FAERS Safety Report 5747039-1 (Version None)
Quarter: 2008Q2

REPORT INFORMATION
  Report Type: 
  Country: None (occurrence: None)
  Receive Date: 20080520
  Receipt Date: 20080514
  Transmission Date: 20081010
  Serious: Yes (Death)
  Sender: FDA-Public Use
  Company Number: 2008SP007378

PATIENT
  Age: 57 Year
  Sex: Male

DRUGS (4)
  1. INTEGRILIN [Suspect]
     Indication: ACUTE CORONARY SYNDROME
     Dosage: IV
     Route: 042
  2. HEPARIN [Suspect]
     Indication: DRUG USE FOR UNKNOWN INDICATION
  3. ASPIRIN [Concomitant]
  4. PLAVIX [Concomitant]

REACTIONS (4)
  - CARDIAC TAMPONADE [None]
  - DEVICE LEAKAGE [None]
  - MEDICAL DEVICE COMPLICATION [None]
  - PERICARDIAL HAEMORRHAGE [None]
